FAERS Safety Report 6681222-6 (Version None)
Quarter: 2010Q2

REPORT INFORMATION
  Report Type: 
  Country: None (occurrence: None)
  Receive Date: 20100414
  Receipt Date: 20091109
  Transmission Date: 20101027
  Serious: No
  Sender: FDA-Public Use
  Company Number: US-KINGPHARMUSA00001-K200901408

PATIENT
  Sex: Female

DRUGS (1)
  1. SKELAXIN [Suspect]
     Dosage: 400 MG, QD
     Route: 048

REACTIONS (3)
  - DIZZINESS [None]
  - HEADACHE [None]
  - SOMNOLENCE [None]
